FAERS Safety Report 26145515 (Version 1)
Quarter: 2025Q4

REPORT INFORMATION
  Report Type: Spontaneous
  Country: EU (occurrence: EU)
  Receive Date: 20251211
  Receipt Date: 20251211
  Transmission Date: 20260117
  Serious: Yes (Death, Life-Threatening, Hospitalization, Other)
  Sender: GILEAD
  Company Number: None

PATIENT
  Age: 68 Year
  Sex: Female

DRUGS (1)
  1. YESCARTA [Suspect]
     Active Substance: AXICABTAGENE CILOLEUCEL
     Indication: Diffuse large B-cell lymphoma
     Dosage: 1 DOSAGE FORM, ONCE
     Route: 042
     Dates: start: 20220722, end: 20220722

REACTIONS (12)
  - Neutropenia [Fatal]
  - Thrombocytopenia [Fatal]
  - Hypogammaglobulinaemia [Fatal]
  - Anaemia [Fatal]
  - Hypokalaemia [Fatal]
  - Bacterial infection [Fatal]
  - Haemophagocytic lymphohistiocytosis [Recovered/Resolved]
  - Acute pulmonary oedema [Recovered/Resolved]
  - Cytokine release syndrome [Recovered/Resolved]
  - Atrial fibrillation [Unknown]
  - Starvation [Unknown]
  - Cardiac failure [Unknown]

NARRATIVE: CASE EVENT DATE: 20220722
